FAERS Safety Report 5900912-3 (Version None)
Quarter: 2008Q3

REPORT INFORMATION
  Report Type: 
  Country: None (occurrence: None)
  Receive Date: 20080929
  Receipt Date: 20080924
  Transmission Date: 20090109
  Serious: Yes (Other)
  Sender: FDA-Public Use
  Company Number: PHEH2008US07607

PATIENT
  Sex: Female

DRUGS (12)
  1. ZOMETA [Suspect]
     Dosage: UNK
     Dates: end: 20060101
  2. AREDIA [Suspect]
  3. LORTAB [Concomitant]
     Dosage: 7.5 MG, UNK
  4. TAMOXIFEN CITRATE [Concomitant]
     Dosage: 20 MG
  5. ADVIL [Concomitant]
  6. CEPHALEXIN [Concomitant]
     Dosage: 500 MG
  7. OXYCODONE HYDROCHLORIDE W/PARACETAMOL [Concomitant]
     Dosage: 5/325 MG
  8. LEXAPRO [Concomitant]
     Dosage: 20 MG
  9. DEXAMETHASONE [Concomitant]
     Dosage: 4 MG
  10. AMBIEN [Concomitant]
     Dosage: 10 MG
  11. ZITHROMAX [Concomitant]
     Dosage: 250 MG
  12. FERROUS SULFATE TAB [Concomitant]
     Dosage: 325 MG

REACTIONS (15)
  - BONE DISORDER [None]
  - COMPUTERISED TOMOGRAM ABNORMAL [None]
  - CONCOMITANT DISEASE PROGRESSION [None]
  - DENTAL FISTULA [None]
  - INFECTION [None]
  - INTERVERTEBRAL DISC DEGENERATION [None]
  - METASTASES TO BONE [None]
  - NERVE INJURY [None]
  - ORAL SURGERY [None]
  - OSTEONECROSIS [None]
  - PAIN [None]
  - PARAESTHESIA [None]
  - T-LYMPHOCYTE COUNT INCREASED [None]
  - TOOTH EXTRACTION [None]
  - WOUND DRAINAGE [None]
